FAERS Safety Report 19765320 (Version 3)
Quarter: 2021Q3

REPORT INFORMATION
  Report Type: Spontaneous
  Country: DE (occurrence: DE)
  Receive Date: 20210830
  Receipt Date: 20210909
  Transmission Date: 20211014
  Serious: Yes (Hospitalization, Other)
  Sender: FDA-Public Use
  Company Number: DE-PFIZER INC-202101011185

PATIENT
  Age: 33 Year
  Sex: Female
  Weight: 74 kg

DRUGS (3)
  1. SERTRALINE [Concomitant]
     Active Substance: SERTRALINE HYDROCHLORIDE
     Dosage: 50 MG, 1X/DAY
  2. CYTOTEC [Suspect]
     Active Substance: MISOPROSTOL
     Indication: INTRAUTERINE CONTRACEPTION
     Dosage: 1 DF (200 UG), SINGLE
     Dates: start: 20210722, end: 20210722
  3. SERTRALINE [Concomitant]
     Active Substance: SERTRALINE HYDROCHLORIDE
     Indication: DEPRESSION
     Dosage: 100MG

REACTIONS (21)
  - Abdominal pain [Unknown]
  - Abdominal pain lower [Recovered/Resolved]
  - Uterine spasm [Recovered/Resolved]
  - Off label use [Unknown]
  - Device dislocation [Recovered/Resolved]
  - Nausea [Recovered/Resolved]
  - Pelvic pain [Recovered/Resolved]
  - Arthralgia [Unknown]
  - Flatulence [Not Recovered/Not Resolved]
  - Pain in extremity [Unknown]
  - Abdominal discomfort [Unknown]
  - Cardiovascular disorder [Recovered/Resolved]
  - Headache [Unknown]
  - Pain [Unknown]
  - Uterine rupture [Recovered/Resolved]
  - Abdominal pain upper [Recovered/Resolved]
  - Circulatory collapse [Unknown]
  - Vertigo [Recovered/Resolved]
  - Mental disorder [Unknown]
  - Vomiting [Recovered/Resolved]
  - Scar [Unknown]

NARRATIVE: CASE EVENT DATE: 202107
